FAERS Safety Report 15495163 (Version 1)
Quarter: 2018Q4

REPORT INFORMATION
  Report Type: Report from Study
  Country: US (occurrence: US)
  Receive Date: 20181012
  Receipt Date: 20181012
  Transmission Date: 20190205
  Serious: No
  Sender: FDA-Public Use
  Company Number: PHEH2018US042572

PATIENT
  Sex: Male
  Weight: 99.77 kg

DRUGS (1)
  1. COSENTYX [Suspect]
     Active Substance: SECUKINUMAB
     Indication: PSORIASIS
     Dosage: 300 UNK, QMO
     Route: 058
     Dates: start: 20180810

REACTIONS (3)
  - Back disorder [Unknown]
  - Limb discomfort [Unknown]
  - Pain [Unknown]
